FAERS Safety Report 7945741-4 (Version None)
Quarter: 2011Q4

REPORT INFORMATION
  Report Type: 
  Country: None (occurrence: None)
  Receive Date: 20111125
  Receipt Date: 20100922
  Transmission Date: 20120403
  Serious: Yes (Hospitalization)
  Sender: FDA-Public Use
  Company Number: ADR-2011-11589

PATIENT

DRUGS (10)
  1. DANTRIUM [Concomitant]
  2. PHENOBARBITAL TAB [Concomitant]
  3. ARTANE [Concomitant]
  4. MUCOSIL-10 [Concomitant]
  5. DIAZEPAM [Concomitant]
  6. ONON [Concomitant]
  7. GABALON INTRATHECAL [Suspect]
  8. MUCODYNE [Concomitant]
  9. MYSTAN [Concomitant]
  10. TRICLORYL [Concomitant]

REACTIONS (1)
  - IMPLANT SITE EFFUSION [None]
